FAERS Safety Report 8291661 (Version 3)
Quarter: 2012Q4

REPORT INFORMATION
  Report Type: Report from Study
  Country: TW (occurrence: TW)
  Receive Date: 20111214
  Receipt Date: 20120913
  Transmission Date: 20130627
  Serious: Yes (Death, Hospitalization, Other)
  Sender: FDA-Public Use
  Company Number: TW-PFIZER INC-2011300243

PATIENT
  Age: 57 Year
  Sex: Male
  Weight: 62 kg

DRUGS (34)
  1. CRIZOTINIB [Suspect]
     Indication: NON-SMALL CELL LUNG CANCER
     Dosage: 250 mg twice daily
     Route: 048
     Dates: start: 20111103, end: 20111208
  2. PHENAZOPYRIDINE [Suspect]
     Indication: URINARY RETENTION
     Dosage: single dose
     Route: 048
     Dates: start: 20111207, end: 20111207
  3. AMOXICILLIN [Suspect]
     Indication: NASOPHARYNGITIS
     Dosage: 500 mg, single
     Route: 048
     Dates: start: 20111205, end: 20111205
  4. CLINDAMYCIN [Suspect]
     Indication: NASOPHARYNGITIS
     Dosage: 150 mg, single
     Route: 048
     Dates: start: 20111205, end: 20111205
  5. ALFUZOSIN [Concomitant]
     Indication: URINARY RETENTION
     Dosage: UNK
     Dates: start: 20111207, end: 20111207
  6. URECHOLINE [Concomitant]
     Indication: URINARY RETENTION
     Dosage: UNK
     Dates: start: 20111207, end: 20111207
  7. PROSULTIAMINE W/RIBOFLAVIN/ [Concomitant]
     Indication: URINARY RETENTION
     Dosage: UNK
     Dates: start: 20111207, end: 20111207
  8. LYSOZYME [Concomitant]
     Indication: NASOPHARYNGITIS
     Dosage: UNK
     Dates: start: 20111205, end: 20111205
  9. DEXTROMETHORPHAN [Concomitant]
     Indication: NASOPHARYNGITIS
     Dosage: UNK
     Dates: start: 20111205, end: 20111205
  10. MORPHINE SULFATE [Concomitant]
     Indication: PAIN
     Dosage: UNK
     Dates: start: 20110629, end: 20111115
  11. FENTANYL CITRATE [Concomitant]
     Indication: PAIN
     Dosage: UNK
     Dates: start: 20111026, end: 20111115
  12. ESTAZOLAM [Concomitant]
     Indication: INSOMNIA
     Dosage: UNK
     Dates: start: 20111026, end: 20111115
  13. ESTAZOLAM [Concomitant]
     Dosage: UNK
     Dates: start: 20111119, end: 20111119
  14. ESTAZOLAM [Concomitant]
     Dosage: UNK
     Dates: start: 20111121, end: 20111122
  15. PARACETAMOL [Concomitant]
     Indication: PYREXIA
     Dosage: UNK
     Dates: start: 20111115, end: 20111115
  16. CEPHALEXIN [Concomitant]
     Indication: PYREXIA
     Dosage: UNK
     Dates: start: 20111115, end: 20111115
  17. DIFENIDOL [Concomitant]
     Indication: VERTIGO
     Dosage: UNK
     Dates: start: 20111115, end: 20111117
  18. DIFENIDOL [Concomitant]
     Dosage: UNK
     Dates: start: 20111123, end: 20111208
  19. FAMOTIDINE [Concomitant]
     Indication: PROPHYLAXIS
     Dosage: UNK
     Dates: start: 20111115, end: 20111115
  20. PIRACETAM [Concomitant]
     Indication: VERTIGO
     Dosage: UNK
     Dates: start: 20111115, end: 20111115
  21. CEFAZOLIN [Concomitant]
     Indication: PYREXIA
     Dosage: UNK
     Dates: start: 20111115, end: 20111115
  22. MAGNESIUM OXIDE [Concomitant]
     Indication: CONSTIPATION
     Dosage: UNK
     Dates: start: 20111116, end: 20111117
  23. ZOLPIDEM [Concomitant]
     Indication: INSOMNIA
     Dosage: UNK
     Dates: start: 20111116, end: 20111118
  24. ZOLPIDEM [Concomitant]
     Dosage: UNK
     Dates: start: 20111121, end: 20111207
  25. MEGESTROL ACETATE [Concomitant]
     Indication: DECREASED APPETITE
     Dosage: UNK
     Dates: start: 20111116, end: 20111208
  26. TAMSULOSIN [Concomitant]
     Indication: URINARY RETENTION
     Dosage: UNK
     Dates: start: 20111116, end: 20111208
  27. FEXOFENADINE [Concomitant]
     Indication: RASH
     Dosage: UNK
     Dates: start: 20111116, end: 20111117
  28. SMECTITE [Concomitant]
     Indication: DIARRHOEA
     Dosage: UNK
     Dates: start: 20111118, end: 20111123
  29. ACETYLCYSTEINE [Concomitant]
     Indication: COUGH
     Dosage: UNK
     Dates: start: 20111119, end: 20111123
  30. PROCHLORPERAZINE [Concomitant]
     Indication: NAUSEA
     Dosage: UNK
     Dates: start: 20111119, end: 20111208
  31. ZOPICLONE [Concomitant]
     Indication: INSOMNIA
     Dosage: UNK
     Dates: start: 20111119, end: 20111120
  32. LORAZEPAM [Concomitant]
     Indication: INSOMNIA
     Dosage: UNK
     Dates: start: 20111120, end: 20111120
  33. PEOLIN [Concomitant]
     Indication: DIARRHOEA
     Dosage: UNK
     Dates: start: 20111122, end: 20111208
  34. BUTYLSCOPOLAMINE [Concomitant]
     Indication: DIARRHOEA
     Dosage: UNK
     Dates: start: 20111119, end: 20111119

REACTIONS (1)
  - Liver injury [Fatal]
